FAERS Safety Report 4830743-7 (Version None)
Quarter: 2005Q4

REPORT INFORMATION
  Report Type: 
  Country: None (occurrence: None)
  Receive Date: 20051117
  Receipt Date: 20050930
  Transmission Date: 20060501
  Serious: Yes (Other)
  Sender: FDA-Public Use
  Company Number: US-MERCK-0510USA00715

PATIENT
  Age: 66 Year
  Sex: Male
  Weight: 102 kg

DRUGS (6)
  1. VIOXX [Suspect]
     Indication: OSTEOARTHRITIS
     Route: 048
     Dates: start: 19991101, end: 20040825
  2. HYZAAR [Concomitant]
     Route: 065
  3. K-DUR 10 [Concomitant]
     Route: 065
  4. LOTENSIN [Concomitant]
     Route: 065
  5. LOTREL [Concomitant]
     Route: 065
  6. VOLTAREN [Concomitant]
     Route: 065

REACTIONS (1)
  - ISCHAEMIC STROKE [None]
